FAERS Safety Report 8766331 (Version 1)
Quarter: 2012Q4

REPORT INFORMATION
  Report Type: Report from Study
  Country: US (occurrence: US)
  Receive Date: 20120904
  Receipt Date: 20120904
  Transmission Date: 20130627
  Serious: Yes (Hospitalization)
  Sender: FDA-Public Use
  Company Number: US-009507513-1208USA007685

PATIENT

DRUGS (3)
  1. VICTRELIS [Suspect]
     Indication: HEPATITIS C
     Dosage: 800 mg, tid
     Route: 048
     Dates: start: 20110819, end: 20120401
  2. REBETOL [Suspect]
     Dosage: 800 mg, qd
     Dates: start: 20110819, end: 20120401
  3. PEGINTERFERON ALFA-2A [Suspect]
     Indication: HEPATITIS C
     Dosage: 180 Microgram, qw
     Dates: start: 20110819, end: 20120401

REACTIONS (9)
  - Pneumonia [Unknown]
  - Blood pressure decreased [Unknown]
  - Loss of consciousness [Unknown]
  - Platelet count decreased [Unknown]
  - Red blood cell count decreased [Unknown]
  - Ascites [Unknown]
  - Night sweats [Unknown]
  - Pruritus [Unknown]
  - Insomnia [Unknown]
